FAERS Safety Report 8001725-1 (Version None)
Quarter: 2011Q4

REPORT INFORMATION
  Report Type: 
  Country: None (occurrence: None)
  Receive Date: 20111222
  Receipt Date: 20111214
  Transmission Date: 20120403
  Serious: Yes (Hospitalization)
  Sender: FDA-Public Use
  Company Number: IT-NOVOPROD-340298

PATIENT

DRUGS (14)
  1. LANTUS [Suspect]
     Indication: TYPE 2 DIABETES MELLITUS
     Dosage: 10 IU, QD
     Route: 058
     Dates: start: 20090101
  2. ALIFLUS [Concomitant]
  3. LEVOTHYROXINE SODIUM [Concomitant]
  4. REPAGLINIDE [Suspect]
     Indication: TYPE 2 DIABETES MELLITUS
     Dosage: 12 MG, QD
     Route: 048
     Dates: start: 20100601, end: 20110429
  5. CACIT VITAMINA D3 [Concomitant]
     Dosage: 0.5 TAB, QD
  6. LANTUS [Suspect]
     Dosage: UNK
     Route: 065
  7. ASPIRIN [Concomitant]
  8. COUMADIN [Concomitant]
  9. TRUSOPT [Concomitant]
  10. ENALAPRIL MALEATE [Concomitant]
  11. PREDNISONE TAB [Concomitant]
  12. ALENDROS [Concomitant]
  13. POTASSIUM CHLORIDE [Concomitant]
  14. PRAVASELECT [Concomitant]

REACTIONS (4)
  - SOPOR [None]
  - BRADYKINESIA [None]
  - BRADYPHRENIA [None]
  - HYPOGLYCAEMIA [None]
